FAERS Safety Report 20940484 (Version 3)
Quarter: 2022Q3

REPORT INFORMATION
  Report Type: Spontaneous
  Country: CN (occurrence: CN)
  Receive Date: 20220609
  Receipt Date: 20220712
  Transmission Date: 20221027
  Serious: Yes (Other)
  Sender: FDA-Public Use
  Company Number: CN-ABBVIE-22K-035-4424780-00

PATIENT
  Age: 43 Year
  Sex: Female

DRUGS (40)
  1. VENETOCLAX [Suspect]
     Active Substance: VENETOCLAX
     Indication: Acute myeloid leukaemia
     Dosage: ON FIRST DAY
     Route: 048
  2. VENETOCLAX [Suspect]
     Active Substance: VENETOCLAX
     Dosage: ON SECOND DAY
     Route: 048
  3. VENETOCLAX [Suspect]
     Active Substance: VENETOCLAX
     Dosage: ON THE THIRD DAY AND MAINTAINED UNTIL THE 14TH DAY.
     Route: 048
  4. VENETOCLAX [Suspect]
     Active Substance: VENETOCLAX
     Dosage: CYCLE 2
     Route: 048
  5. VENETOCLAX [Suspect]
     Active Substance: VENETOCLAX
     Dosage: CYCLE 3
     Route: 048
  6. VENETOCLAX [Suspect]
     Active Substance: VENETOCLAX
     Dosage: CYCLE 4
     Route: 048
  7. AZACITIDINE [Suspect]
     Active Substance: AZACITIDINE
     Indication: Acute myeloid leukaemia
     Dosage: ON DAY 1 TO 7
     Route: 058
  8. AZACITIDINE [Suspect]
     Active Substance: AZACITIDINE
     Route: 058
  9. AZACITIDINE [Suspect]
     Active Substance: AZACITIDINE
     Route: 058
  10. AZACITIDINE [Suspect]
     Active Substance: AZACITIDINE
     Route: 058
  11. OMACETAXINE MEPESUCCINATE [Suspect]
     Active Substance: OMACETAXINE MEPESUCCINATE
     Indication: Acute myeloid leukaemia
     Dosage: ON DAY 3 TO 9
     Route: 065
  12. OMACETAXINE MEPESUCCINATE [Suspect]
     Active Substance: OMACETAXINE MEPESUCCINATE
     Route: 065
  13. OMACETAXINE MEPESUCCINATE [Suspect]
     Active Substance: OMACETAXINE MEPESUCCINATE
     Route: 065
  14. OMACETAXINE MEPESUCCINATE [Suspect]
     Active Substance: OMACETAXINE MEPESUCCINATE
     Route: 065
  15. ACLARUBICIN HYDROCHLORIDE [Suspect]
     Active Substance: ACLARUBICIN HYDROCHLORIDE
     Indication: Acute myeloid leukaemia
     Dosage: ON 3RD TO 6TH DAY
     Route: 058
  16. CYTARABINE [Suspect]
     Active Substance: CYTARABINE
     Indication: Acute myeloid leukaemia
     Route: 058
  17. CYTARABINE [Suspect]
     Active Substance: CYTARABINE
     Route: 058
  18. CYTARABINE [Suspect]
     Active Substance: CYTARABINE
     Route: 058
  19. CYTARABINE [Suspect]
     Active Substance: CYTARABINE
     Route: 058
  20. GRANULOCYTE COLONY-STIMULATING FACTOR NOS [Suspect]
     Active Substance: GRANULOCYTE COLONY-STIMULATING FACTOR NOS
     Indication: Acute myeloid leukaemia
     Dosage: ON DAY 1
     Route: 058
  21. GRANULOCYTE COLONY-STIMULATING FACTOR NOS [Suspect]
     Active Substance: GRANULOCYTE COLONY-STIMULATING FACTOR NOS
     Route: 058
  22. GRANULOCYTE COLONY-STIMULATING FACTOR NOS [Suspect]
     Active Substance: GRANULOCYTE COLONY-STIMULATING FACTOR NOS
     Route: 058
  23. GRANULOCYTE COLONY-STIMULATING FACTOR NOS [Suspect]
     Active Substance: GRANULOCYTE COLONY-STIMULATING FACTOR NOS
     Route: 058
  24. IDARUBICIN [Suspect]
     Active Substance: IDARUBICIN
     Indication: Acute myeloid leukaemia
     Route: 065
  25. IDARUBICIN [Suspect]
     Active Substance: IDARUBICIN
     Route: 065
  26. IDARUBICIN [Suspect]
     Active Substance: IDARUBICIN
     Route: 065
  27. TUCIDINOSTAT [Suspect]
     Active Substance: TUCIDINOSTAT
     Indication: Acute myeloid leukaemia
     Route: 065
  28. TUCIDINOSTAT [Suspect]
     Active Substance: TUCIDINOSTAT
     Route: 065
  29. TUCIDINOSTAT [Suspect]
     Active Substance: TUCIDINOSTAT
     Route: 065
  30. TUCIDINOSTAT [Suspect]
     Active Substance: TUCIDINOSTAT
     Route: 065
  31. FLUDARABINE [Suspect]
     Active Substance: FLUDARABINE PHOSPHATE
     Indication: Acute myeloid leukaemia
     Route: 065
  32. FLUDARABINE [Suspect]
     Active Substance: FLUDARABINE PHOSPHATE
     Route: 065
  33. DECITABINE [Suspect]
     Active Substance: DECITABINE
     Indication: Acute myeloid leukaemia
     Route: 065
  34. DECITABINE [Suspect]
     Active Substance: DECITABINE
     Route: 065
  35. DECITABINE [Suspect]
     Active Substance: DECITABINE
     Route: 065
  36. DECITABINE [Suspect]
     Active Substance: DECITABINE
     Route: 065
  37. CLADRIBINE [Suspect]
     Active Substance: CLADRIBINE
     Indication: Acute myeloid leukaemia
     Route: 065
  38. CLADRIBINE [Suspect]
     Active Substance: CLADRIBINE
     Route: 065
  39. CLADRIBINE [Suspect]
     Active Substance: CLADRIBINE
     Route: 065
  40. CLADRIBINE [Suspect]
     Active Substance: CLADRIBINE
     Route: 065

REACTIONS (6)
  - Myelosuppression [Unknown]
  - Alopecia [Unknown]
  - Infection [Recovering/Resolving]
  - Haemorrhage [Unknown]
  - Nausea [Unknown]
  - Diarrhoea [Unknown]
